FAERS Safety Report 7982634-0 (Version None)
Quarter: 2011Q4

REPORT INFORMATION
  Report Type: 
  Country: None (occurrence: None)
  Receive Date: 20111215
  Receipt Date: 20111212
  Transmission Date: 20120403
  Serious: Yes (Congenital Anomaly)
  Sender: FDA-Public Use
  Company Number: DE-GLAXOSMITHKLINE-D0073762A

PATIENT
  Age: 10 Day
  Sex: Female
  Weight: 3.5 kg

DRUGS (2)
  1. BERLINSULIN H [Concomitant]
     Indication: TYPE 1 DIABETES MELLITUS
     Route: 064
  2. LAMOTRIGINE [Suspect]
     Indication: EPILEPSY
     Dosage: 25MG TWICE PER DAY
     Route: 064

REACTIONS (2)
  - PULMONARY VALVE INCOMPETENCE [None]
  - FOETAL EXPOSURE DURING PREGNANCY [None]
